FAERS Safety Report 8927291 (Version 2)
Quarter: 2012Q4

REPORT INFORMATION
  Report Type: 
  Country: JP (occurrence: JP)
  Receive Date: 20121127
  Receipt Date: 20121212
  Transmission Date: 20130627
  Serious: Yes (Hospitalization)
  Sender: FDA-Public Use
  Company Number: JP-009507513-1211JPN008695

PATIENT
  Age: 94 Year
  Sex: Male

DRUGS (6)
  1. NU-LOTAN TABLETS 100MG [Suspect]
     Indication: CARDIAC FAILURE
     Route: 048
  2. MAGMITT [Concomitant]
     Route: 048
  3. ALOSENN (SENNA) [Concomitant]
     Route: 048
  4. MUCOSTA [Concomitant]
     Route: 048
  5. HALCION [Concomitant]
     Route: 048
  6. DIOVAN [Concomitant]
     Route: 048

REACTIONS (2)
  - Hyponatraemia [Unknown]
  - Adrenal insufficiency [Unknown]
